FAERS Safety Report 18258249 (Version 1)
Quarter: 2020Q3

REPORT INFORMATION
  Report Type: Spontaneous
  Country: US (occurrence: US)
  Receive Date: 20200911
  Receipt Date: 20200911
  Transmission Date: 20201103
  Serious: Yes (Hospitalization, Other)
  Sender: FDA-Public Use
  Company Number: US-ALVOGEN-2020-ALVOGEN-114236

PATIENT
  Age: 35 Year
  Sex: Male
  Weight: 62 kg

DRUGS (6)
  1. NIGELLA SATIVA SEED OIL [Suspect]
     Active Substance: DIETARY SUPPLEMENT\HERBALS
     Indication: MIGRAINE
     Route: 048
  2. OXYCODONE [Suspect]
     Active Substance: OXYCODONE
     Indication: ABDOMINAL PAIN
     Dosage: EVERY 6 HOURS
  3. PANTOPRAZOLE [Concomitant]
     Active Substance: PANTOPRAZOLE
     Indication: GASTROOESOPHAGEAL REFLUX DISEASE
  4. FENTANYL. [Suspect]
     Active Substance: FENTANYL
     Indication: GENERAL ANAESTHESIA
     Route: 042
  5. PROPOFOL. [Concomitant]
     Active Substance: PROPOFOL
     Indication: SEDATION
  6. GABAPENTIN. [Concomitant]
     Active Substance: GABAPENTIN
     Indication: ABDOMINAL PAIN

REACTIONS (1)
  - Serotonin syndrome [Recovered/Resolved]
